FAERS Safety Report 9863398 (Version 3)
Quarter: 2014Q1

REPORT INFORMATION
  Report Type: Spontaneous
  Country: US (occurrence: US)
  Receive Date: 20140203
  Receipt Date: 20140312
  Transmission Date: 20141002
  Serious: Yes (Hospitalization, Other)
  Sender: FDA-Public Use
  Company Number: US-GILEAD-2014-0091376

PATIENT
  Sex: Male

DRUGS (2)
  1. LETAIRIS [Suspect]
     Indication: PULMONARY ARTERIAL HYPERTENSION
     Dosage: 10 MG, QD
     Route: 048
     Dates: start: 20111226
  2. FLOLAN [Concomitant]
     Indication: PULMONARY ARTERIAL HYPERTENSION
     Dates: start: 20111216

REACTIONS (2)
  - Right ventricular failure [Unknown]
  - Ascites [Unknown]
